FAERS Safety Report 7213171-9 (Version None)
Quarter: 2010Q4

REPORT INFORMATION
  Report Type: 
  Country: None (occurrence: None)
  Receive Date: 20101227
  Receipt Date: 20101214
  Transmission Date: 20110411
  Serious: Yes (Other)
  Sender: FDA-Public Use
  Company Number: 023763

PATIENT
  Sex: Female

DRUGS (1)
  1. CIMZIA [Suspect]

REACTIONS (3)
  - MYOCLONUS [None]
  - NERVOUS SYSTEM DISORDER [None]
  - RESTLESS LEGS SYNDROME [None]
